FAERS Safety Report 18754081 (Version 2)
Quarter: 2021Q1

REPORT INFORMATION
  Report Type: Spontaneous
  Country: US (occurrence: US)
  Receive Date: 20210119
  Receipt Date: 20210308
  Transmission Date: 20210419
  Serious: No
  Sender: FDA-Public Use
  Company Number: US-ASTRAZENECA-2021A005924

PATIENT
  Age: 30580 Day
  Sex: Female
  Weight: 82.6 kg

DRUGS (1)
  1. SYMBICORT [Suspect]
     Active Substance: BUDESONIDE\FORMOTEROL FUMARATE DIHYDRATE
     Indication: CHRONIC OBSTRUCTIVE PULMONARY DISEASE
     Dosage: 160/4.5, TWO INHALATIONS TWO TIMES A DAY
     Route: 055
     Dates: start: 2018

REACTIONS (9)
  - Intentional device misuse [Unknown]
  - Wrong technique in product usage process [Unknown]
  - Nasal disorder [Not Recovered/Not Resolved]
  - Oxygen saturation decreased [Unknown]
  - Nasopharyngitis [Unknown]
  - Dizziness [Unknown]
  - Product packaging quantity issue [Unknown]
  - Product dose omission issue [Unknown]
  - Drug delivery system issue [Unknown]

NARRATIVE: CASE EVENT DATE: 20210109
